FAERS Safety Report 6711870-6 (Version None)
Quarter: 2010Q2

REPORT INFORMATION
  Report Type: 
  Country: None (occurrence: None)
  Receive Date: 20100505
  Receipt Date: 20100423
  Transmission Date: 20101027
  Serious: Yes (Other)
  Sender: FDA-Public Use
  Company Number: FR-ELI_LILLY_AND_COMPANY-FR201004007628

PATIENT
  Age: 65 Year
  Sex: Male

DRUGS (5)
  1. ALIMTA [Suspect]
     Indication: NON-SMALL CELL LUNG CANCER
     Dosage: 500 MG/M2, OTHER (EVERY 3 MONTHS)
     Route: 042
     Dates: start: 20100301, end: 20100401
  2. FOLIC ACID W/VITAMIN B12 [Concomitant]
     Indication: VITAMIN SUPPLEMENTATION
     Dosage: UNK, UNKNOWN
     Route: 065
  3. STEROID ANTIBACTERIALS [Concomitant]
     Indication: PROPHYLAXIS
     Dosage: UNK, UNKNOWN
     Route: 065
  4. ROXITHROMYCIN [Concomitant]
     Dosage: UNK, UNKNOWN
     Route: 065
  5. PYOSTACINE [Concomitant]
     Dosage: UNK, UNKNOWN
     Route: 065

REACTIONS (1)
  - OEDEMA [None]
